FAERS Safety Report 4634513-4 (Version None)
Quarter: 2005Q2

REPORT INFORMATION
  Report Type: 
  Country: None (occurrence: None)
  Receive Date: 20050412
  Receipt Date: 20050405
  Transmission Date: 20051028
  Serious: No
  Sender: FDA-Public Use
  Company Number: 2005-126955-NL

PATIENT
  Age: 50 Year
  Sex: Female

DRUGS (4)
  1. MIRTAZAPINE [Suspect]
     Dosage: 15 MG QD
     Route: 048
     Dates: start: 20050329, end: 20050330
  2. FERROUS GLUCONATE [Concomitant]
  3. HYDROCHLOROTHIAZIDE [Concomitant]
  4. IRBESARTAN [Concomitant]

REACTIONS (3)
  - HYPOAESTHESIA ORAL [None]
  - THROAT IRRITATION [None]
  - TONGUE DISCOLOURATION [None]
